FAERS Safety Report 8161301-7 (Version None)
Quarter: 2012Q1

REPORT INFORMATION
  Report Type: 
  Country: None (occurrence: None)
  Receive Date: 20120224
  Receipt Date: 20120216
  Transmission Date: 20120608
  Serious: Yes (Other)
  Sender: FDA-Public Use
  Company Number: AU-JNJFOC-20110508917

PATIENT
  Sex: Female
  Weight: 78.7 kg

DRUGS (3)
  1. SIMPONI [Suspect]
     Indication: PSORIATIC ARTHROPATHY
     Route: 058
     Dates: start: 20110421
  2. PENICILLIN [Concomitant]
     Indication: PROPHYLAXIS
  3. SIMPONI [Suspect]
     Route: 058
     Dates: start: 20110715

REACTIONS (3)
  - PERTUSSIS [None]
  - OROPHARYNGEAL PAIN [None]
  - TONSILLITIS [None]
